FAERS Safety Report 7533514-6 (Version None)
Quarter: 2011Q2

REPORT INFORMATION
  Report Type: 
  Country: None (occurrence: None)
  Receive Date: 20110608
  Receipt Date: 20060214
  Transmission Date: 20111010
  Serious: Yes (Hospitalization)
  Sender: FDA-Public Use
  Company Number: PHHO2006PH02792

PATIENT
  Sex: Male

DRUGS (4)
  1. TARKA [Concomitant]
  2. LACIPIL [Concomitant]
  3. CANDESARTAN CILEXETIL [Concomitant]
  4. DIOVAN HCT [Suspect]
     Indication: HYPERTENSION
     Dosage: 185 MG, QD
     Route: 048

REACTIONS (2)
  - INFLAMMATION [None]
  - CARDIOMEGALY [None]
